FAERS Safety Report 4285966-5 (Version None)
Quarter: 2004Q1

REPORT INFORMATION
  Report Type: 
  Country: None (occurrence: None)
  Receive Date: 20040120
  Receipt Date: 20030228
  Transmission Date: 20041129
  Serious: Yes (Other)
  Sender: FDA-Public Use
  Company Number: NSADSS2003004016

PATIENT
  Age: 37 Year
  Sex: Female
  Weight: 89.3586 kg

DRUGS (1)
  1. COPPER T MODEL TCU 380A [Suspect]
     Indication: INTRA-UTERINE CONTRACEPTIVE DEVICE INSERTION
     Dosage: INTRAUTERINE
     Route: 015
     Dates: start: 20021219, end: 20030121

REACTIONS (2)
  - OVARIAN CYST [None]
  - UTERINE LEIOMYOMA [None]
